FAERS Safety Report 10879267 (Version 1)
Quarter: 2015Q1

REPORT INFORMATION
  Report Type: Spontaneous
  Country: US (occurrence: None)
  Receive Date: 20150224
  Receipt Date: 20150224
  Transmission Date: 20150721
  Serious: Yes (Life-Threatening, Hospitalization)
  Sender: FDA-Public Use
  Company Number: None

PATIENT
  Age: 89 Year
  Sex: Female
  Weight: 112.6 kg

DRUGS (3)
  1. AMIODARONE [Suspect]
     Active Substance: AMIODARONE
     Indication: CARDIOVASCULAR DISORDER
     Route: 042
     Dates: start: 20140101, end: 20140101
  2. AMIODARONE [Suspect]
     Active Substance: AMIODARONE
     Indication: SURGERY
     Route: 042
     Dates: start: 20140101, end: 20140101
  3. AMIODARONE [Suspect]
     Active Substance: AMIODARONE
     Indication: ATRIAL FIBRILLATION
     Route: 042
     Dates: start: 20140101, end: 20140101

REACTIONS (8)
  - Pulmonary congestion [None]
  - Angioedema [None]
  - Pleural effusion [None]
  - Respiratory failure [None]
  - Cough [None]
  - Wheezing [None]
  - Bronchial oedema [None]
  - Atelectasis [None]

NARRATIVE: CASE EVENT DATE: 20140101
